FAERS Safety Report 21741946 (Version 1)
Quarter: 2022Q4

REPORT INFORMATION
  Report Type: Spontaneous
  Country: US (occurrence: US)
  Receive Date: 20221216
  Receipt Date: 20221216
  Transmission Date: 20230113
  Serious: No
  Sender: FDA-Public Use
  Company Number: US-MYLANLABS-2022M1137651

PATIENT
  Sex: Female

DRUGS (2)
  1. FINGOLIMOD [Suspect]
     Active Substance: FINGOLIMOD
     Indication: Product used for unknown indication
     Dosage: UNK
     Route: 065
     Dates: start: 20221107
  2. BENADRYL [Concomitant]
     Active Substance: DIPHENHYDRAMINE HYDROCHLORIDE
     Dosage: UNK
     Route: 065

REACTIONS (6)
  - Tongue blistering [Unknown]
  - Lip blister [Unknown]
  - Throat irritation [Unknown]
  - Hypersensitivity [Unknown]
  - Urticaria [Unknown]
  - Product substitution issue [Unknown]

NARRATIVE: CASE EVENT DATE: 20221109
